FAERS Safety Report 7688587-7 (Version None)
Quarter: 2011Q3

REPORT INFORMATION
  Report Type: 
  Country: None (occurrence: None)
  Receive Date: 20110817
  Receipt Date: 20110808
  Transmission Date: 20111222
  Serious: Yes (Disabling)
  Sender: FDA-Public Use
  Company Number: AU-B.I. PHARMACEUTICALS,INC./RIDGEFIELD-2011-AU-00857AU

PATIENT
  Sex: Male
  Weight: 80 kg

DRUGS (5)
  1. PRADAXA [Suspect]
     Indication: ATRIAL FIBRILLATION
     Dosage: 110 MG
     Dates: start: 20110621, end: 20110718
  2. NEXIUM [Concomitant]
     Dosage: 20 MG
  3. LASIX [Concomitant]
     Dosage: 20 MG
  4. BETALOC [Concomitant]
     Dosage: 50 MG
  5. RAMIPRIL [Concomitant]
     Dosage: 5 MG

REACTIONS (2)
  - ARTHRALGIA [None]
  - ABDOMINAL PAIN UPPER [None]
